FAERS Safety Report 6772917-4 (Version None)
Quarter: 2010Q2

REPORT INFORMATION
  Report Type: 
  Country: None (occurrence: None)
  Receive Date: 20100616
  Receipt Date: 20100610
  Transmission Date: 20101027
  Serious: Yes (Disabling, Other)
  Sender: FDA-Public Use
  Company Number: BR-PFIZER INC-2010072848

PATIENT
  Age: 79 Year
  Sex: Female
  Weight: 65 kg

DRUGS (1)
  1. GENOTROPIN [Suspect]
     Dosage: UNK
     Route: 058
     Dates: start: 20060101

REACTIONS (8)
  - BREAST CANCER [None]
  - FALL [None]
  - FATIGUE [None]
  - IMMUNODEFICIENCY [None]
  - JOINT SPRAIN [None]
  - PAIN [None]
  - PELVIC FRACTURE [None]
  - STRESS [None]
